FAERS Safety Report 19080880 (Version 1)
Quarter: 2021Q1

REPORT INFORMATION
  Report Type: Spontaneous
  Country: CO (occurrence: CO)
  Receive Date: 20210331
  Receipt Date: 20210331
  Transmission Date: 20210420
  Serious: Yes (Other)
  Sender: FDA-Public Use
  Company Number: CO-BAYER-2021-113127

PATIENT
  Age: 70 Year
  Sex: Female

DRUGS (1)
  1. SORAFENIB (RAF KINASE INHIBITOR) [Suspect]
     Active Substance: SORAFENIB
     Indication: PAPILLARY THYROID CANCER
     Dosage: DAILY DOSE 800 MG
     Route: 048
     Dates: start: 201708

REACTIONS (1)
  - Melanocytic naevus [None]

NARRATIVE: CASE EVENT DATE: 201709
